FAERS Safety Report 18243724 (Version 4)
Quarter: 2021Q1

REPORT INFORMATION
  Report Type: Spontaneous
  Country: FR (occurrence: FR)
  Receive Date: 20200908
  Receipt Date: 20210107
  Transmission Date: 20210419
  Serious: Yes (Other)
  Sender: FDA-Public Use
  Company Number: FR-PFIZER INC-2020345619

PATIENT
  Age: 71 Year
  Sex: Male

DRUGS (5)
  1. AMLOR [Suspect]
     Active Substance: AMLODIPINE BESYLATE
     Indication: HYPERTENSION
     Dosage: 10 MG, 1X/DAY
     Route: 048
     Dates: start: 20200515
  2. CELLCEPT [Suspect]
     Active Substance: MYCOPHENOLATE MOFETIL\MYCOPHENOLATE MOFETIL HYDROCHLORIDE
     Dosage: 500 MG, 2X/DAY IN THE MORNING AND IN THE EVENING
     Dates: start: 2020
  3. CELLCEPT [Suspect]
     Active Substance: MYCOPHENOLATE MOFETIL\MYCOPHENOLATE MOFETIL HYDROCHLORIDE
     Indication: RENAL TRANSPLANT
     Dosage: 2000 MILLIGRAM, QD
     Route: 065
     Dates: start: 2018, end: 20200727
  4. PANTOPRAZOLE [Suspect]
     Active Substance: PANTOPRAZOLE
     Indication: PROPHYLAXIS AGAINST GASTROINTESTINAL ULCER
     Dosage: 40 MG, 1X/DAY
     Route: 048
     Dates: start: 20200420, end: 20200717
  5. AMLOR [Suspect]
     Active Substance: AMLODIPINE BESYLATE
     Dosage: UNK

REACTIONS (2)
  - Leukopenia [Recovered/Resolved]
  - Neutropenia [Recovered/Resolved]

NARRATIVE: CASE EVENT DATE: 20200709
